FAERS Safety Report 4661508-7 (Version None)
Quarter: 2005Q2

REPORT INFORMATION
  Report Type: 
  Country: None (occurrence: None)
  Receive Date: 20050502
  Receipt Date: 20041223
  Transmission Date: 20051028
  Serious: Yes (Other)
  Sender: FDA-Public Use
  Company Number: 200419792US

PATIENT

DRUGS (1)
  1. KETEK [Suspect]

REACTIONS (3)
  - ANAPHYLACTIC REACTION [None]
  - OROPHARYNGEAL SWELLING [None]
  - WHEEZING [None]
